FAERS Safety Report 16558106 (Version 1)
Quarter: 2019Q3

REPORT INFORMATION
  Report Type: Spontaneous
  Country: US (occurrence: US)
  Receive Date: 20190710
  Receipt Date: 20190710
  Transmission Date: 20191004
  Serious: Yes (Life-Threatening, Disabling, Other)
  Sender: FDA-Public Use
  Company Number: None

PATIENT
  Sex: Female
  Weight: 81.65 kg

DRUGS (3)
  1. PARAGARD T 380A [Suspect]
     Active Substance: COPPER
  2. ADDERALL [Concomitant]
     Active Substance: AMPHETAMINE ASPARTATE\AMPHETAMINE SULFATE\DEXTROAMPHETAMINE SACCHARATE\DEXTROAMPHETAMINE SULFATE
  3. MELOXICAM. [Concomitant]
     Active Substance: MELOXICAM

REACTIONS (11)
  - Joint stiffness [None]
  - Rash [None]
  - Ovarian cyst [None]
  - Complication associated with device [None]
  - Blindness [None]
  - Feeling abnormal [None]
  - Rheumatoid arthritis [None]
  - Deafness [None]
  - Headache [None]
  - Inflammation [None]
  - Back pain [None]
